FAERS Safety Report 9821031 (Version 2)
Quarter: 2014Q1

REPORT INFORMATION
  Report Type: Spontaneous
  Country: GB (occurrence: GB)
  Receive Date: 20140116
  Receipt Date: 20140314
  Transmission Date: 20141002
  Serious: Yes (Death, Other)
  Sender: FDA-Public Use
  Company Number: GB-BRISTOL-MYERS SQUIBB COMPANY-20012449

PATIENT
  Age: 65 Year
  Sex: Female

DRUGS (12)
  1. ABATACEPT [Suspect]
     Indication: RHEUMATOID ARTHRITIS
     Dosage: 2 INFUSIONS.
     Route: 042
     Dates: start: 201307
  2. WARFARIN [Suspect]
  3. METHOTREXATE [Suspect]
  4. FOLIC ACID [Suspect]
  5. HYDROXYCHLOROQUINE [Suspect]
  6. SIMVASTATIN [Suspect]
  7. PREDNISOLONE [Suspect]
  8. IMMUNOGLOBULIN [Concomitant]
     Route: 058
  9. CALCICHEW D3 [Concomitant]
     Dosage: FORTE 2 DAILY.
  10. IODINE [Concomitant]
  11. QUININE SULFATE [Concomitant]
  12. ALENDRONATE [Concomitant]

REACTIONS (5)
  - Deep vein thrombosis [Fatal]
  - Wound [Fatal]
  - Vascular injury [Fatal]
  - General physical health deterioration [Fatal]
  - Fall [Unknown]
